FAERS Safety Report 5520643-1 (Version None)
Quarter: 2007Q4

REPORT INFORMATION
  Report Type: 
  Country: None (occurrence: None)
  Receive Date: 20071119
  Receipt Date: 20071113
  Transmission Date: 20080405
  Serious: Yes (Hospitalization)
  Sender: FDA-Public Use
  Company Number: FR-BRISTOL-MYERS SQUIBB COMPANY-13915905

PATIENT
  Age: 40 Year
  Sex: Female

DRUGS (5)
  1. ABILIFY [Suspect]
     Indication: SCHIZOPHRENIA
     Dosage: INITIATED AT 15MG/DAY
     Route: 048
     Dates: start: 20070808
  2. LOXAPAC [Concomitant]
     Dosage: 75 MG X3
  3. TERCIAN [Concomitant]
     Dosage: 30 MGX3
  4. RIVOTRIL [Concomitant]
     Dosage: 1 MG X 3
  5. TRIMEPRAZINE TAB [Concomitant]

REACTIONS (2)
  - SPINAL COMPRESSION FRACTURE [None]
  - SUICIDE ATTEMPT [None]
